FAERS Safety Report 5149331-0 (Version None)
Quarter: 2006Q4

REPORT INFORMATION
  Report Type: 
  Country: None (occurrence: None)
  Receive Date: 20061113
  Receipt Date: 20051110
  Transmission Date: 20070319
  Serious: No
  Sender: FDA-Public Use
  Company Number: US-GLAXOSMITHKLINE-A0581813A

PATIENT

DRUGS (3)
  1. COREG [Suspect]
     Dosage: 12.5MG UNKNOWN
     Route: 048
  2. DIURETIC [Concomitant]
  3. ACE INHIBITOR [Concomitant]

REACTIONS (1)
  - SWELLING [None]
